FAERS Safety Report 17984473 (Version 2)
Quarter: 2020Q3

REPORT INFORMATION
  Report Type: Spontaneous
  Country: AR (occurrence: AR)
  Receive Date: 20200706
  Receipt Date: 20200724
  Transmission Date: 20201103
  Serious: Yes (Death, Other)
  Sender: FDA-Public Use
  Company Number: AR-009507513-2007ARG000681

PATIENT
  Age: 65 Year
  Sex: Male

DRUGS (1)
  1. KEYTRUDA [Suspect]
     Active Substance: PEMBROLIZUMAB
     Indication: GASTROOESOPHAGEAL CANCER
     Dosage: 200 MG, EVERY 21 DAYS
     Dates: start: 20200615, end: 202007

REACTIONS (3)
  - Neuropathy peripheral [Unknown]
  - Diarrhoea [Unknown]
  - Malignant neoplasm progression [Fatal]

NARRATIVE: CASE EVENT DATE: 20200622
